FAERS Safety Report 14318323 (Version 3)
Quarter: 2018Q1

REPORT INFORMATION
  Report Type: Spontaneous
  Country: US (occurrence: US)
  Receive Date: 20171222
  Receipt Date: 20180301
  Transmission Date: 20180509
  Serious: Yes (Hospitalization, Other)
  Sender: FDA-Public Use
  Company Number: US-PARI RESPIRATORY EQUIPMENT, INC.-2017PAR00036

PATIENT
  Age: 2 Year
  Sex: Male

DRUGS (3)
  1. KITABIS PAK [Suspect]
     Active Substance: TOBRAMYCIN
     Indication: CYSTIC FIBROSIS
     Dosage: 5 ML, 2X/DAY
     Route: 055
     Dates: start: 201709
  2. TOBRAMYCIN. [Suspect]
     Active Substance: TOBRAMYCIN
  3. UNSPECIFIED BRAND NAME OF TOBRAMYCIN [Suspect]
     Active Substance: TOBRAMYCIN

REACTIONS (3)
  - Candidiasis of trachea [Recovering/Resolving]
  - Seizure [Recovered/Resolved]
  - Off label use [Unknown]

NARRATIVE: CASE EVENT DATE: 2017
